FAERS Safety Report 4654702-2 (Version None)
Quarter: 2005Q2

REPORT INFORMATION
  Report Type: 
  Country: None (occurrence: None)
  Receive Date: 20050505
  Receipt Date: 20050505
  Transmission Date: 20051028
  Serious: Yes (Disabling)
  Sender: FDA-Public Use
  Company Number: None

PATIENT
  Age: 57 Year
  Sex: Female
  Weight: 77.1115 kg

DRUGS (1)
  1. CRESTOR [Suspect]
     Indication: BLOOD CHOLESTEROL INCREASED
     Dosage: 1 TABLET   EVENING
     Dates: start: 20050201, end: 20050421

REACTIONS (8)
  - BLOOD CREATININE INCREASED [None]
  - CONTUSION [None]
  - DIARRHOEA [None]
  - DIFFICULTY IN WALKING [None]
  - DYSSTASIA [None]
  - MUSCLE SPASMS [None]
  - PAIN [None]
  - VOMITING [None]
